FAERS Safety Report 7098930 (Version 3)
Quarter: 2014Q3

REPORT INFORMATION
  Report Type: Spontaneous
  Country: US (occurrence: None)
  Receive Date: 20090820
  Receipt Date: 20140822
  Transmission Date: 20150326
  Serious: Yes (Other)
  Sender: FDA-Public Use
  Company Number: 2009S1006516

PATIENT
  Age: 70 Year
  Sex: Female
  Weight: 80 kg

DRUGS (2)
  1. PHOSPHO-SODA [Suspect]
     Active Substance: SODIUM PHOSPHATE, DIBASIC\SODIUM PHOSPHATE, MONOBASIC
     Indication: COLONOSCOPY
     Dosage: ; PO
     Route: 048
     Dates: start: 20080929, end: 20080930
  2. ALEVE (NAPROXEN SODIUM) [Concomitant]

REACTIONS (20)
  - Gout [None]
  - Dyslipidaemia [None]
  - Nephrolithiasis [None]
  - Blood parathyroid hormone increased [None]
  - Post procedural complication [None]
  - Dysgeusia [None]
  - Haemoglobin decreased [None]
  - Renal failure chronic [None]
  - Hydronephrosis [None]
  - Infectious colitis [None]
  - Pain in extremity [None]
  - Renal failure acute [None]
  - Hyperkalaemia [None]
  - Dry mouth [None]
  - Renal cyst [None]
  - Dehydration [None]
  - Nausea [None]
  - Vomiting [None]
  - Abdominal pain [None]
  - Colitis ischaemic [None]

NARRATIVE: CASE EVENT DATE: 20081016
